FAERS Safety Report 4633466-2 (Version None)
Quarter: 2005Q2

REPORT INFORMATION
  Report Type: 
  Country: None (occurrence: None)
  Receive Date: 20050412
  Receipt Date: 20050310
  Transmission Date: 20051028
  Serious: Yes (Hospitalization, Other)
  Sender: FDA-Public Use
  Company Number: 2005PL000013

PATIENT
  Age: 27 Year
  Sex: Female

DRUGS (1)
  1. TRANDATE [Suspect]
     Dosage: X1;PO
     Route: 048
     Dates: start: 20050307, end: 20050307

REACTIONS (3)
  - DRUG EXPOSURE DURING PREGNANCY [None]
  - INTENTIONAL MISUSE [None]
  - SUICIDAL IDEATION [None]
